FAERS Safety Report 6356146-4 (Version None)
Quarter: 2009Q3

REPORT INFORMATION
  Report Type: 
  Country: None (occurrence: None)
  Receive Date: 20090915
  Receipt Date: 20090910
  Transmission Date: 20100115
  Serious: Yes (Other)
  Sender: FDA-Public Use
  Company Number: SE-BRISTOL-MYERS SQUIBB COMPANY-14774921

PATIENT
  Age: 65 Year
  Sex: Male

DRUGS (10)
  1. PARAPLATIN [Suspect]
     Indication: PLEURAL MESOTHELIOMA MALIGNANT
     Dosage: CONCENTRATE FOR SOLUTION FOR INFUSION;GIVEN 5 TIMES IN 3 MONTHS
     Route: 042
     Dates: start: 20090127, end: 20090412
  2. ALIMTA [Suspect]
     Indication: PLEURAL MESOTHELIOMA MALIGNANT
     Dosage: GIVEN 5 TIMES IN 3 MONTHS;POWDER FOR CONCENTRATE FOR SOLUTION FOR INF
     Route: 042
     Dates: start: 20090127, end: 20090412
  3. OXYNORM [Concomitant]
     Dosage: CAPSULE,HARD 5MG
  4. PAMOL [Concomitant]
     Dosage: FILM COATED TABLET 500MG (NYCOMED AB) (PARACETAMOL).
  5. ZOPICLONE [Concomitant]
  6. LACTULOSE [Concomitant]
     Dosage: LAKTULOS ALTERNOVA SYRUP 667 MG/ML
  7. BETAPRED [Concomitant]
     Dosage: TABLET 0.5MG (DEFIANTE FARMACEUTICA S.A.) (BETAMETHASONE SODIUM PHOSPHATE, BETAMETHASONE).
  8. OXASCAND [Concomitant]
     Dosage: TABLET 5MG (TEVA SWEDEN AB) (OXAZEPAM)
  9. NAVOBAN [Concomitant]
     Dosage: CAPSULE,HARD 5MG (NOVARTIS SVERIGE AB) (TROPISETRON, TROPISETRON HYDROCHLORIDE).
  10. OXYCONTIN [Concomitant]
     Dosage: OXYCONTIN PROLONGED-RELEASE TABLET 20 MG (MUNDIPHARMA AB) (OXYCODONE, OXYCODONE HYDROCHLORIDE).

REACTIONS (3)
  - PAPILLOEDEMA [None]
  - RETINAL HAEMORRHAGE [None]
  - VITREOUS HAEMORRHAGE [None]
